FAERS Safety Report 9198486 (Version 1)
Quarter: 2013Q1

REPORT INFORMATION
  Report Type: Spontaneous
  Country: BR (occurrence: BR)
  Receive Date: 20130329
  Receipt Date: 20130329
  Transmission Date: 20140127
  Serious: Yes (Other)
  Sender: FDA-Public Use
  Company Number: PHHY2013BR029494

PATIENT
  Sex: Female
  Weight: 60 kg

DRUGS (4)
  1. FORASEQ [Suspect]
     Indication: DYSPNOEA
     Dosage: 1 DF, BID
  2. FORASEQ [Suspect]
     Dosage: UNK
  3. DILACORON [Concomitant]
     Indication: ANGINA PECTORIS
     Dosage: 80 MG, QD, 3 TABLETS
     Route: 048
  4. MONTELAIR [Concomitant]
     Indication: ASTHMA
     Dosage: 1 DF, QD
     Route: 048

REACTIONS (6)
  - Intervertebral disc protrusion [Not Recovered/Not Resolved]
  - Pulmonary mass [Not Recovered/Not Resolved]
  - Migraine [Recovered/Resolved]
  - Pain [Recovering/Resolving]
  - Burning sensation [Recovering/Resolving]
  - Abdominal distension [Recovering/Resolving]
